FAERS Safety Report 5305900-6 (Version None)
Quarter: 2007Q2

REPORT INFORMATION
  Report Type: 
  Country: None (occurrence: None)
  Receive Date: 20070424
  Receipt Date: 20070420
  Transmission Date: 20071010
  Serious: Yes (Other)
  Sender: FDA-Public Use
  Company Number: 1632078507030182

PATIENT
  Age: 68 Year
  Sex: Female

DRUGS (21)
  1. MELPHALAN [Suspect]
     Indication: MULTIPLE MYELOMA
     Dosage: 16MG PER DAY
     Route: 048
     Dates: start: 20070214, end: 20070312
  2. THALIDOMIDE [Suspect]
     Indication: MULTIPLE MYELOMA
     Dosage: 100MG PER DAY
     Dates: start: 20070129
  3. PREDNISONE TAB [Suspect]
     Indication: MULTIPLE MYELOMA
     Dosage: 50MG CYCLIC
     Route: 048
     Dates: start: 20070214, end: 20070312
  4. PLAVIX [Concomitant]
  5. ACTONEL [Concomitant]
     Dosage: 35MG WEEKLY
  6. CALCIUM + VITAMIN D [Concomitant]
  7. KLOR-CON [Concomitant]
     Dosage: 20MEQ PER DAY
     Dates: start: 20061218
  8. PAROXETINE [Concomitant]
     Dosage: 20MG PER DAY
     Dates: start: 20061218
  9. DIOVAN [Concomitant]
     Dosage: 80MG PER DAY
     Dates: start: 20061218
  10. FUROSEMIDE [Concomitant]
     Dosage: 20MG PER DAY
     Dates: start: 20061218
  11. ECOTRIN [Concomitant]
     Dosage: 325MG PER DAY
  12. LIPITOR [Concomitant]
     Dosage: 40MG PER DAY
  13. LEVOTHYROXINE SODIUM [Concomitant]
     Dosage: .075MG PER DAY
  14. TOPROL-XL [Concomitant]
     Dosage: 50MG PER DAY
  15. FLOMAX [Concomitant]
  16. INSULIN [Concomitant]
  17. VICODIN [Concomitant]
  18. IBUPROFEN [Concomitant]
  19. CLOPIDOGREL [Concomitant]
     Dosage: 75MG PER DAY
  20. DEXA [Concomitant]
     Dates: start: 20070312
  21. PROTONIX [Concomitant]
     Dosage: 40MG PER DAY
     Dates: start: 20070312

REACTIONS (3)
  - PANCYTOPENIA [None]
  - PNEUMOCOCCAL SEPSIS [None]
  - PNEUMONIA [None]
